FAERS Safety Report 7532858-1 (Version None)
Quarter: 2011Q2

REPORT INFORMATION
  Report Type: 
  Country: None (occurrence: None)
  Receive Date: 20110601
  Receipt Date: 20110526
  Transmission Date: 20111010
  Serious: Yes (Hospitalization)
  Sender: FDA-Public Use
  Company Number: 2009SP023247

PATIENT
  Age: 24 Year
  Sex: Female
  Weight: 73.0291 kg

DRUGS (2)
  1. NUVARING [Suspect]
     Indication: CONTRACEPTION
     Dates: start: 20070201, end: 20070821
  2. STUDY DRUG [Concomitant]

REACTIONS (6)
  - URINARY TRACT INFECTION [None]
  - THROMBOSIS [None]
  - ANAEMIA [None]
  - DEEP VEIN THROMBOSIS [None]
  - SCAR [None]
  - PAIN IN EXTREMITY [None]
